FAERS Safety Report 5734656-8 (Version None)
Quarter: 2008Q2

REPORT INFORMATION
  Report Type: 
  Country: None (occurrence: None)
  Receive Date: 20080512
  Receipt Date: 20080508
  Transmission Date: 20081010
  Serious: Yes (Hospitalization)
  Sender: FDA-Public Use
  Company Number: PHHO2006US04773

PATIENT
  Age: 78 Year
  Sex: Male
  Weight: 87.54 kg

DRUGS (17)
  1. GLEEVEC [Suspect]
     Indication: GASTROINTESTINAL STROMAL TUMOUR
     Dosage: 400 MG, QD
     Route: 048
     Dates: start: 20060201, end: 20060329
  2. GLEEVEC [Suspect]
     Dosage: 400 MG, QD
     Route: 048
     Dates: start: 20060110, end: 20060119
  3. ALENDRONATE SODIUM [Concomitant]
  4. ASCORBIC ACID [Concomitant]
  5. ATENOLOL [Concomitant]
  6. AVANDIA [Concomitant]
  7. COUMADIN [Concomitant]
  8. DOXEPIN HCL [Concomitant]
  9. GABAPENTIN [Concomitant]
  10. IRON SULFATETHIAMIN COMPOUND TAB [Concomitant]
  11. LASIX [Suspect]
  12. LORTAB [Concomitant]
  13. OMEPRAZOLE [Concomitant]
  14. POTASSIUM CHLORIDE [Concomitant]
  15. VALSARTAN [Concomitant]
  16. ZOCOR [Concomitant]
  17. INSULIN [Concomitant]

REACTIONS (18)
  - ALTERED STATE OF CONSCIOUSNESS [None]
  - ASTHENIA [None]
  - ATAXIA [None]
  - BLOOD GLUCOSE INCREASED [None]
  - BLOOD PRESSURE INCREASED [None]
  - BUNDLE BRANCH BLOCK RIGHT [None]
  - CEREBELLAR SYNDROME [None]
  - CONFUSIONAL STATE [None]
  - CONJUNCTIVAL HAEMORRHAGE [None]
  - CONTUSION [None]
  - CONVULSION [None]
  - DIPLOPIA [None]
  - EPILEPSY [None]
  - LEFT VENTRICULAR HYPERTROPHY [None]
  - OEDEMA PERIPHERAL [None]
  - SYNCOPE [None]
  - TONGUE PARALYSIS [None]
  - URINARY INCONTINENCE [None]
